FAERS Safety Report 21972612 (Version 2)
Quarter: 2023Q1

REPORT INFORMATION
  Report Type: Spontaneous
  Country: US (occurrence: US)
  Receive Date: 20230209
  Receipt Date: 20230314
  Transmission Date: 20230417
  Serious: No
  Sender: FDA-Public Use
  Company Number: US-BRISTOL-MYERS SQUIBB COMPANY-2023-019205

PATIENT
  Age: 74 Year
  Sex: Female
  Weight: 51.26 kg

DRUGS (2)
  1. REVLIMID [Suspect]
     Active Substance: LENALIDOMIDE
     Indication: Plasma cell myeloma
     Dosage: 3W ON 1W OFF
     Route: 048
     Dates: start: 20220608, end: 20230208
  2. REVLIMID [Suspect]
     Active Substance: LENALIDOMIDE
     Dosage: FREQUENCY:  21D ON 7D OFF
     Route: 048

REACTIONS (1)
  - Neutrophil count decreased [Recovering/Resolving]
